FAERS Safety Report 5893455-7 (Version None)
Quarter: 2008Q3

REPORT INFORMATION
  Report Type: 
  Country: None (occurrence: None)
  Receive Date: 20080919
  Receipt Date: 20080903
  Transmission Date: 20090109
  Serious: Yes (Other)
  Sender: FDA-Public Use
  Company Number: 8032637

PATIENT
  Age: 22 Year
  Sex: Female
  Weight: 60 kg

DRUGS (4)
  1. KEPPRA [Suspect]
     Indication: EPILEPSY
     Dosage: 250 MG 2/D PO
     Route: 048
     Dates: start: 20070101
  2. JULIETTE [Suspect]
     Indication: CONTRACEPTION
     Dates: start: 20060501, end: 20071101
  3. JULIETTE [Suspect]
     Indication: CONTRACEPTION
     Dates: end: 20080201
  4. CARBAMAZEPINE [Suspect]
     Indication: EPILEPSY
     Dosage: 800 MG /D PO
     Route: 048
     Dates: start: 20070501, end: 20071101

REACTIONS (3)
  - ABORTION [None]
  - DRUG EXPOSURE DURING PREGNANCY [None]
  - PREGNANCY ON ORAL CONTRACEPTIVE [None]
